FAERS Safety Report 7244400-3 (Version None)
Quarter: 2011Q1

REPORT INFORMATION
  Report Type: 
  Country: None (occurrence: None)
  Receive Date: 20110125
  Receipt Date: 20110124
  Transmission Date: 20110831
  Serious: Yes (Other)
  Sender: FDA-Public Use
  Company Number: CZ-ABBOTT-11P-217-0695985-00

PATIENT
  Sex: Female
  Weight: 17 kg

DRUGS (3)
  1. KLACID SUSPENSION [Suspect]
     Indication: ACUTE TONSILLITIS
     Route: 048
     Dates: start: 20101219, end: 20101221
  2. IBUPROFEN [Concomitant]
     Indication: PYREXIA
     Route: 048
     Dates: start: 20101218, end: 20101222
  3. CEFZIL [Concomitant]
     Indication: EAR INFECTION
     Dates: start: 20101104

REACTIONS (3)
  - DERMATITIS ALLERGIC [None]
  - OEDEMA [None]
  - PRURITUS [None]
